FAERS Safety Report 9083299 (Version 1)
Quarter: 2013Q1

REPORT INFORMATION
  Report Type: Report from Study
  Country: US (occurrence: US)
  Receive Date: 20130130
  Receipt Date: 20130130
  Transmission Date: 20140127
  Serious: No
  Sender: FDA-Public Use
  Company Number: US-ABBOTT-12P-163-0935324-00

PATIENT
  Age: 59 Year
  Sex: Female

DRUGS (11)
  1. HUMIRA 40 MG/0.8 ML PEN [Suspect]
     Indication: CROHN^S DISEASE
     Dosage: LOADING DOSE FOR 30-APR-2012
     Dates: start: 20120430
  2. HUMIRA 40 MG/0.8 ML PEN [Suspect]
  3. LEVOTHYROXINE [Concomitant]
     Indication: PRODUCT USED FOR UNKNOWN INDICATION
     Dosage: DAILY
     Route: 048
  4. HYZAAR [Concomitant]
     Indication: HYPERTENSION
     Dosage: 50/123.5 MG DAILY
     Route: 048
  5. TOPROL [Concomitant]
     Indication: HYPERTENSION
     Dosage: ER  DAILY
     Route: 048
  6. OMEPRAZOLE [Concomitant]
     Indication: GASTROOESOPHAGEAL REFLUX DISEASE
     Dosage: DAILY
     Route: 048
  7. LIPITOR [Concomitant]
     Indication: BLOOD CHOLESTEROL INCREASED
     Dosage: DAILY
     Route: 048
  8. MULTIVITAMIN [Concomitant]
     Indication: VITAMIN SUPPLEMENTATION
  9. ACIDOPHILUS [Concomitant]
     Indication: PROBIOTIC THERAPY
  10. VIT B 12 [Concomitant]
     Indication: BLOOD IRON DECREASED
     Route: 048
  11. THIAMINE [Concomitant]
     Indication: PRODUCT USED FOR UNKNOWN INDICATION

REACTIONS (4)
  - Injection site pain [Not Recovered/Not Resolved]
  - Injection site bruising [Recovered/Resolved]
  - Injection site pain [Recovered/Resolved]
  - Injection site pain [Unknown]
